FAERS Safety Report 9829086 (Version 2)
Quarter: 2014Q1

REPORT INFORMATION
  Report Type: Spontaneous
  Country: US (occurrence: US)
  Receive Date: 20140119
  Receipt Date: 20140212
  Transmission Date: 20141002
  Serious: No
  Sender: FDA-Public Use
  Company Number: US-009507513-1401USA004352

PATIENT
  Sex: Female

DRUGS (6)
  1. ZOCOR [Suspect]
     Indication: BLOOD CHOLESTEROL INCREASED
     Dosage: 40 MG, QD
     Route: 048
  2. ZOCOR [Suspect]
     Dosage: 20 MG, QD
     Route: 048
  3. VYTORIN [Suspect]
     Dosage: 10/40 MG ONCE DAILY
  4. VYTORIN [Suspect]
     Dosage: 10/20 MG, ONCE DAILY
  5. DIOVAN [Concomitant]
     Dosage: 80 MG, QD
  6. OMEPRAZOLE [Concomitant]
     Dosage: 20 MG, QD

REACTIONS (3)
  - Muscle spasms [Not Recovered/Not Resolved]
  - Insomnia [Unknown]
  - Drug ineffective [Unknown]
